FAERS Safety Report 7254822-2 (Version None)
Quarter: 2011Q1

REPORT INFORMATION
  Report Type: 
  Country: None (occurrence: None)
  Receive Date: 20110129
  Receipt Date: 20100301
  Transmission Date: 20110831
  Serious: No
  Sender: FDA-Public Use
  Company Number: US-ABBOTT-10P-163-0629304-00

PATIENT
  Sex: Female
  Weight: 52.21 kg

DRUGS (2)
  1. TOPICAL [Concomitant]
     Indication: PRODUCT USED FOR UNKNOWN INDICATION
  2. HUMIRA [Suspect]
     Indication: CROHN'S DISEASE
     Dates: start: 20090425

REACTIONS (2)
  - PSORIASIS [None]
  - ARTHRALGIA [None]
